FAERS Safety Report 7668440-5 (Version None)
Quarter: 2011Q3

REPORT INFORMATION
  Report Type: 
  Country: None (occurrence: None)
  Receive Date: 20110808
  Receipt Date: 20110517
  Transmission Date: 20111222
  Serious: No
  Sender: FDA-Public Use
  Company Number: US-GLAXOSMITHKLINE-A0927604A

PATIENT
  Age: 16 Year
  Sex: Female

DRUGS (2)
  1. VELTIN [Suspect]
     Indication: ACNE
     Dosage: 1APP AT NIGHT
     Route: 061
     Dates: start: 20110501
  2. NO CONCURRENT MEDICATION [Concomitant]

REACTIONS (1)
  - ACNE [None]
